FAERS Safety Report 22519180 (Version 1)
Quarter: 2023Q2

REPORT INFORMATION
  Report Type: Spontaneous
  Country: CN (occurrence: CN)
  Receive Date: 20230605
  Receipt Date: 20230605
  Transmission Date: 20230722
  Serious: Yes (Death, Other)
  Sender: FDA-Public Use
  Company Number: CN-STRIDES ARCOLAB LIMITED-2023SP008786

PATIENT
  Age: 63 Year
  Sex: Female

DRUGS (25)
  1. DEXAMETHASONE [Suspect]
     Active Substance: DEXAMETHASONE
     Indication: Plasma cell myeloma
     Dosage: UNK, CYCLICAL (4 CYCLES) ADMINISTERED UNDER THE BD REGIMEN
     Route: 065
     Dates: start: 20170712, end: 20171206
  2. DEXAMETHASONE [Suspect]
     Active Substance: DEXAMETHASONE
     Dosage: UNK, CYCLICAL (3 CYCLES) ADMINISTERED UNDER THE VCD REGIMEN
     Route: 065
     Dates: start: 20171206, end: 20180403
  3. DEXAMETHASONE [Suspect]
     Active Substance: DEXAMETHASONE
     Dosage: UNK, CYCLICAL (3 CYCLES) ADMINISTERED UNDER THE RAD REGIMEN
     Route: 065
     Dates: start: 20180403, end: 20180829
  4. DEXAMETHASONE [Suspect]
     Active Substance: DEXAMETHASONE
     Dosage: UNK, CYCLICAL (3 CYCLES) ADMINISTERED UNDER THE IRD REGIMEN
     Route: 065
     Dates: start: 20180829, end: 20181126
  5. DEXAMETHASONE [Suspect]
     Active Substance: DEXAMETHASONE
     Dosage: UNK, CYCLICAL (4 CYCLES) ADMINISTERED UNDER THE ICD REGIMEN
     Route: 065
     Dates: start: 20181126, end: 20190412
  6. DEXAMETHASONE [Suspect]
     Active Substance: DEXAMETHASONE
     Dosage: UNK, ADMINISTERED UNDER THE CTD REGIMEN
     Route: 065
     Dates: start: 20191010, end: 20200328
  7. DEXAMETHASONE [Suspect]
     Active Substance: DEXAMETHASONE
     Dosage: UNK, CYCLICAL (3 CYCLES) ADMINISTERED UNDER THE BVD REGIMEN
     Route: 065
     Dates: start: 20200328
  8. PREDNISOLONE [Suspect]
     Active Substance: PREDNISOLONE
     Indication: Plasma cell myeloma
     Dosage: UNK
     Route: 065
     Dates: start: 20190412, end: 20190626
  9. BORTEZOMIB [Suspect]
     Active Substance: BORTEZOMIB
     Indication: Plasma cell myeloma
     Dosage: UNK, CYCLICAL (4 CYCLES) ADMINISTERED UNDER THE BD REGIMEN
     Route: 065
     Dates: start: 20170712, end: 20171206
  10. BORTEZOMIB [Suspect]
     Active Substance: BORTEZOMIB
     Dosage: UNK, CYCLICAL (3 CYCLES) ADMINISTERED UNDER THE VCD REGIMEN
     Route: 065
     Dates: start: 20171206, end: 20180403
  11. BORTEZOMIB [Suspect]
     Active Substance: BORTEZOMIB
     Dosage: UNK, CYCLICAL (3 CYCLES) ADMINISTERED UNDER THE BVD REGIMEN
     Route: 065
     Dates: start: 20200328
  12. CYCLOPHOSPHAMIDE [Suspect]
     Active Substance: CYCLOPHOSPHAMIDE
     Indication: Plasma cell myeloma
     Dosage: UNK, CYCLICAL (3 CYCLES) ADMINISTERED UNDER THE VCD REGIMEN
     Route: 065
     Dates: start: 20171206, end: 20180403
  13. CYCLOPHOSPHAMIDE [Suspect]
     Active Substance: CYCLOPHOSPHAMIDE
     Dosage: UNK, CYCLICAL (4 CYCLES) ADMINISTERED UNDER THE ICD REGIMEN
     Route: 065
     Dates: start: 20181126, end: 20190412
  14. CYCLOPHOSPHAMIDE [Suspect]
     Active Substance: CYCLOPHOSPHAMIDE
     Dosage: UNK, ADMINISTERED UNDER THE CTD REGIMEN
     Route: 065
     Dates: start: 20191010, end: 20200328
  15. LENALIDOMIDE [Suspect]
     Active Substance: LENALIDOMIDE
     Indication: Plasma cell myeloma
     Dosage: UNK, CYCLICAL (3 CYCLES) ADMINISTERED UNDER THE RAD REGIMEN
     Route: 065
     Dates: start: 20180403, end: 20180829
  16. LENALIDOMIDE [Suspect]
     Active Substance: LENALIDOMIDE
     Dosage: UNK, CYCLICAL (3 CYCLES) ADMINISTERED UNDER THE IRD REGIMEN
     Route: 065
     Dates: start: 20180829, end: 20181126
  17. ADRIAMYCIN [Suspect]
     Active Substance: DOXORUBICIN HYDROCHLORIDE
     Indication: Plasma cell myeloma
     Dosage: UNK, CYCLICAL (3 CYCLES) ADMINISTERED UNDER THE RAD REGIMEN
     Route: 065
     Dates: start: 20180403, end: 20180829
  18. IXAZOMIB [Suspect]
     Active Substance: IXAZOMIB
     Indication: Plasma cell myeloma
     Dosage: UNK, CYCLICAL (3 CYCLES) ADMINISTERED UNDER THE IRD REGIMEN
     Route: 065
     Dates: start: 20180829, end: 20181126
  19. IXAZOMIB [Suspect]
     Active Substance: IXAZOMIB
     Dosage: UNK, CYCLICAL (4 CYCLES) ADMINISTERED UNDER THE ICD REGIMEN
     Route: 065
     Dates: start: 20181126, end: 20190412
  20. MELPHALAN [Suspect]
     Active Substance: MELPHALAN
     Indication: Plasma cell myeloma
     Dosage: UNK
     Route: 065
     Dates: start: 20190412, end: 20190626
  21. TUCIDINOSTAT [Suspect]
     Active Substance: TUCIDINOSTAT
     Indication: Plasma cell myeloma
     Dosage: UNK
     Route: 065
     Dates: start: 20190412, end: 20190626
  22. POMALIDOMIDE [Suspect]
     Active Substance: POMALIDOMIDE
     Indication: Plasma cell myeloma
     Dosage: UNK
     Route: 065
     Dates: start: 20190626, end: 20191010
  23. DARATUMUMAB [Suspect]
     Active Substance: DARATUMUMAB
     Indication: Plasma cell myeloma
     Dosage: UNK
     Route: 065
     Dates: start: 20191010, end: 20200328
  24. THALIDOMIDE [Suspect]
     Active Substance: THALIDOMIDE
     Indication: Plasma cell myeloma
     Dosage: UNK, ADMINISTERED UNDER THE CTD REGIMEN
     Route: 065
     Dates: start: 20191010, end: 20200328
  25. BENDAMUSTINE [Suspect]
     Active Substance: BENDAMUSTINE
     Indication: Plasma cell myeloma
     Dosage: UNK, CYCLICAL (3 CYCLES) ADMINISTERED UNDER THE BVD REGIMEN
     Route: 065
     Dates: start: 20200328

REACTIONS (3)
  - Plasma cell myeloma [Fatal]
  - Drug ineffective [Fatal]
  - Arteriosclerosis coronary artery [Unknown]
